FAERS Safety Report 18494313 (Version 1)
Quarter: 2020Q4

REPORT INFORMATION
  Report Type: Report from Study
  Country: None (occurrence: US)
  Receive Date: 20201111
  Receipt Date: 20201111
  Transmission Date: 20210114
  Serious: Yes (Other)
  Sender: FDA-Public Use
  Company Number: US-ABBVIE-20K-163-3639571-00

PATIENT
  Age: 53 Year
  Sex: Female

DRUGS (3)
  1. RITALIN [Suspect]
     Active Substance: METHYLPHENIDATE HYDROCHLORIDE
     Indication: PRODUCT USED FOR UNKNOWN INDICATION
     Route: 065
  2. INSULIN [Concomitant]
     Active Substance: INSULIN NOS
     Indication: PRODUCT USED FOR UNKNOWN INDICATION
  3. VENCLEXTA [Suspect]
     Active Substance: VENETOCLAX
     Indication: LYMPHOCYTIC LEUKAEMIA
     Route: 048

REACTIONS (8)
  - Leukaemia [Unknown]
  - International normalised ratio increased [Unknown]
  - Autonomic nervous system imbalance [Unknown]
  - Thrombosis [Not Recovered/Not Resolved]
  - Coma [Unknown]
  - Therapeutic response shortened [Unknown]
  - Coagulopathy [Unknown]
  - Feeling hot [Unknown]

NARRATIVE: CASE EVENT DATE: 201710
